FAERS Safety Report 5572233-2 (Version None)
Quarter: 2007Q4

REPORT INFORMATION
  Report Type: 
  Country: None (occurrence: None)
  Receive Date: 20071221
  Receipt Date: 20071211
  Transmission Date: 20080405
  Serious: Yes (Life-Threatening, Other)
  Sender: FDA-Public Use
  Company Number: US-PFIZER INC-2007104366

PATIENT
  Sex: Female
  Weight: 84.09 kg

DRUGS (2)
  1. NARDIL [Suspect]
     Indication: DEPRESSION
  2. XANAX [Concomitant]
     Indication: ANXIETY

REACTIONS (3)
  - BLOOD PRESSURE INCREASED [None]
  - CHEST PAIN [None]
  - HEADACHE [None]
